FAERS Safety Report 19403607 (Version 1)
Quarter: 2021Q2

REPORT INFORMATION
  Report Type: Spontaneous
  Country: US (occurrence: US)
  Receive Date: 20210610
  Receipt Date: 20210610
  Transmission Date: 20210717
  Serious: Yes (Death)
  Sender: FDA-Public Use
  Company Number: None

PATIENT
  Age: 58 Year
  Sex: Male
  Weight: 98.43 kg

DRUGS (10)
  1. CALCITRIOL. [Concomitant]
     Active Substance: CALCITRIOL
  2. FAMOTIDINE. [Concomitant]
     Active Substance: FAMOTIDINE
  3. MIDODRINE [Concomitant]
     Active Substance: MIDODRINE
  4. NEPHROCAP [Concomitant]
  5. INSULIN [Concomitant]
     Active Substance: INSULIN NOS
  6. EPOETIN ALPHA?EPBX [Concomitant]
  7. HYDROCORTISONE. [Concomitant]
     Active Substance: HYDROCORTISONE
  8. ATORVASTALIN [Concomitant]
  9. APIXABAN [Suspect]
     Active Substance: APIXABAN
     Indication: PULMONARY EMBOLISM
     Route: 048
     Dates: start: 20210601, end: 20210604
  10. CEFAZOLIN [Concomitant]
     Active Substance: CEFAZOLIN

REACTIONS (1)
  - Cerebral haemorrhage [None]

NARRATIVE: CASE EVENT DATE: 20210605
